FAERS Safety Report 8248767-9 (Version None)
Quarter: 2012Q1

REPORT INFORMATION
  Report Type: 
  Country: None (occurrence: None)
  Receive Date: 20120331
  Receipt Date: 20120329
  Transmission Date: 20120608
  Serious: Yes (Death, Hospitalization, Disabling, Other)
  Sender: FDA-Public Use
  Company Number: PHFR2011GB05004

PATIENT
  Sex: Male
  Weight: 166 kg

DRUGS (7)
  1. AMISULPRIDE [Concomitant]
     Dosage: 50 MG, DAILY
     Route: 048
     Dates: start: 20110909
  2. SUBOXONE [Concomitant]
     Dosage: 4 MG, DAILY
     Route: 048
  3. ATROPINE [Concomitant]
  4. ALBUTEROL [Concomitant]
     Dosage: UNK UKN, UNK
     Route: 058
  5. CLOZARIL [Suspect]
     Indication: SCHIZOPHRENIA
     Dosage: 300 MG, DAILY
     Route: 048
  6. ARIPIPRAZOLE [Concomitant]
     Dosage: 10 MG, DAILY
     Route: 048
     Dates: start: 20110914, end: 20111001
  7. CLARITHROMYCIN [Concomitant]
     Dosage: 500 MG, BID
     Route: 065

REACTIONS (15)
  - SEDATION [None]
  - SOMNOLENCE [None]
  - DYSPNOEA [None]
  - DEATH [None]
  - DRUG ABUSE [None]
  - AGITATION [None]
  - LOWER LIMB FRACTURE [None]
  - GENERAL PHYSICAL HEALTH DETERIORATION [None]
  - SALIVARY HYPERSECRETION [None]
  - DRUG DEPENDENCE [None]
  - MOBILITY DECREASED [None]
  - MENTAL IMPAIRMENT [None]
  - LOWER RESPIRATORY TRACT INFECTION [None]
  - WEIGHT INCREASED [None]
  - CHOKING SENSATION [None]
